FAERS Safety Report 20202462 (Version 2)
Quarter: 2021Q4

REPORT INFORMATION
  Report Type: Spontaneous
  Country: IN (occurrence: IN)
  Receive Date: 20211217
  Receipt Date: 20211225
  Transmission Date: 20220303
  Serious: Yes (Life-Threatening, Hospitalization, Other)
  Sender: FDA-Public Use
  Company Number: IN-Accord-247464

PATIENT
  Age: 17 Year
  Sex: Male

DRUGS (3)
  1. TACROLIMUS [Suspect]
     Active Substance: TACROLIMUS
     Indication: Immunosuppression
     Dosage: 2.5 MG TWICE DAILY, ON DAY 7 DOSE: 3.25 MG TWICE DAILY, ON DAY 30 DOSE DECREASED TO 3 MG TWICE DAILY
  2. MYCOPHENOLATE MOFETIL [Concomitant]
     Active Substance: MYCOPHENOLATE MOFETIL
     Indication: Immunosuppression
     Dosage: 720 MG TWICE DAILY
  3. PREDNISOLONE [Concomitant]
     Active Substance: PREDNISOLONE
     Indication: Immunosuppression
     Dosage: REDUCED TO 17.5 MG ONCE DAILY, ORAL PREDNISOLONE WAS FURTHER TAPERED TO 15 MG/DAY.

REACTIONS (5)
  - Pancreatitis acute [Recovered/Resolved]
  - Diabetic ketoacidosis [Recovered/Resolved]
  - Hypertriglyceridaemia [Recovered/Resolved]
  - Respiratory distress [Recovered/Resolved]
  - Drug level increased [Recovered/Resolved]
